FAERS Safety Report 8884770 (Version 1)
Quarter: 2012Q4

REPORT INFORMATION
  Report Type: 
  Country: CA (occurrence: CA)
  Receive Date: 20121102
  Receipt Date: 20121102
  Transmission Date: 20130627
  Serious: Yes (Other)
  Sender: FDA-Public Use
  Company Number: CA-AMGEN-CANSP2012058525

PATIENT
  Age: 63 Year
  Sex: Female
  Weight: 49.89 kg

DRUGS (2)
  1. PROLIA [Suspect]
     Indication: OSTEOPOROSIS
     Dosage: UNK UNK, one time dose
     Route: 058
     Dates: start: 20120402
  2. DICLOFENAC [Concomitant]
     Dosage: UNK

REACTIONS (1)
  - Metastases to bone [Unknown]
